FAERS Safety Report 8173424 (Version 4)
Quarter: 2012Q4

REPORT INFORMATION
  Report Type: 
  Country: US (occurrence: US)
  Receive Date: 20111007
  Receipt Date: 20120914
  Transmission Date: 20130627
  Serious: Yes (Hospitalization, Other)
  Sender: FDA-Public Use
  Company Number: US-ROCHE-798115

PATIENT
  Age: 20 None
  Sex: Male

DRUGS (5)
  1. TARCEVA [Suspect]
     Indication: HEPATIC NEOPLASM MALIGNANT
     Dosage: FREQUENCY: QD
     Route: 048
     Dates: start: 20110510, end: 20110725
  2. TARCEVA [Suspect]
     Indication: HEPATIC NEOPLASM MALIGNANT
  3. AVASTIN [Suspect]
     Indication: HEPATIC NEOPLASM MALIGNANT
     Route: 042
     Dates: start: 201105, end: 201107
  4. AVASTIN [Suspect]
     Indication: HEPATIC NEOPLASM MALIGNANT
     Route: 042
  5. BACTRIM [Concomitant]

REACTIONS (10)
  - Oesophageal ulcer [Recovered/Resolved]
  - Eosinophilic oesophagitis [Recovered/Resolved]
  - Nosocomial infection [Unknown]
  - Dermatitis acneiform [Recovered/Resolved]
  - Dry skin [Recovered/Resolved]
  - Skin exfoliation [Recovered/Resolved]
  - Mucosal inflammation [Unknown]
  - Gastritis [Unknown]
  - Skin toxicity [Recovering/Resolving]
  - Drug intolerance [Unknown]
